FAERS Safety Report 25157401 (Version 1)
Quarter: 2025Q2

REPORT INFORMATION
  Report Type: Spontaneous
  Country: DE (occurrence: DE)
  Receive Date: 20250403
  Receipt Date: 20250403
  Transmission Date: 20250717
  Serious: Yes (Other)
  Sender: ELI LILLY AND CO
  Company Number: DE-Merck Healthcare KGaA-2025015746

PATIENT

DRUGS (5)
  1. CETUXIMAB [Suspect]
     Active Substance: CETUXIMAB
     Indication: Adenocarcinoma of colon
     Route: 065
     Dates: start: 202010, end: 202102
  2. LEUCOVORIN [Concomitant]
     Active Substance: LEUCOVORIN\LEUCOVORIN CALCIUM
     Indication: Adenocarcinoma of colon
     Route: 065
     Dates: start: 202010, end: 202102
  3. FLUOROURACIL [Concomitant]
     Active Substance: FLUOROURACIL
     Indication: Adenocarcinoma of colon
     Route: 065
     Dates: start: 202010, end: 202102
  4. OXALIPLATIN [Concomitant]
     Active Substance: OXALIPLATIN
     Indication: Adenocarcinoma of colon
     Route: 065
     Dates: start: 202010, end: 202102
  5. IRINOTECAN [Concomitant]
     Active Substance: IRINOTECAN
     Indication: Adenocarcinoma of colon
     Route: 065
     Dates: start: 202010, end: 202102

REACTIONS (1)
  - Neoplasm recurrence [Unknown]

NARRATIVE: CASE EVENT DATE: 20210701
